FAERS Safety Report 24680839 (Version 1)
Quarter: 2024Q4

REPORT INFORMATION
  Report Type: Report from Study
  Country: US (occurrence: US)
  Receive Date: 20241129
  Receipt Date: 20241129
  Transmission Date: 20250114
  Serious: Yes (Other)
  Sender: ALEXION PHARMACEUTICALS
  Company Number: US-AstraZeneca-CH-00750024A

PATIENT
  Age: 76 Year

DRUGS (2)
  1. EXENATIDE [Suspect]
     Active Substance: EXENATIDE
     Route: 065
  2. DAPAGLIFLOZIN [Suspect]
     Active Substance: DAPAGLIFLOZIN

REACTIONS (2)
  - Breast cancer [Unknown]
  - Product use issue [Unknown]
